FAERS Safety Report 5444955-5 (Version None)
Quarter: 2007Q3

REPORT INFORMATION
  Report Type: 
  Country: None (occurrence: None)
  Receive Date: 20070906
  Receipt Date: 20070827
  Transmission Date: 20080115
  Serious: Yes (Other)
  Sender: FDA-Public Use
  Company Number: US-ROCHE-513724

PATIENT
  Age: 58 Year
  Sex: Male
  Weight: 85.9 kg

DRUGS (4)
  1. PEG-INTERFERON ALFA 2A (RO 25-8310) [Suspect]
     Indication: HEPATITIS C
     Route: 058
     Dates: start: 20060919
  2. RIBAVIRIN [Suspect]
     Indication: HEPATITIS C
     Route: 048
     Dates: start: 20060919
  3. VX-950 [Suspect]
     Indication: HEPATITIS C
     Route: 048
     Dates: start: 20060919, end: 20061211
  4. EFFEXOR [Concomitant]
     Indication: MOOD SWINGS
     Route: 048

REACTIONS (2)
  - OPTIC NERVE INFARCTION [None]
  - SCOTOMA [None]
